FAERS Safety Report 9205461 (Version 1)
Quarter: 2013Q2

REPORT INFORMATION
  Report Type: Spontaneous
  Country: JP (occurrence: JP)
  Receive Date: 20130403
  Receipt Date: 20130403
  Transmission Date: 20140414
  Serious: Yes (Other)
  Sender: FDA-Public Use
  Company Number: JP-RANBAXY-2013R1-66629

PATIENT
  Age: 68 Year
  Sex: Male

DRUGS (1)
  1. TRIAMCINOLONE [Suspect]
     Indication: PROPHYLAXIS
     Dosage: 0.2ML (2MG)
     Route: 065

REACTIONS (1)
  - Gastric ulcer [Recovering/Resolving]
